FAERS Safety Report 9988794 (Version 1)
Quarter: 2014Q1

REPORT INFORMATION
  Report Type: Spontaneous
  Country: FR (occurrence: FR)
  Receive Date: 20140310
  Receipt Date: 20140310
  Transmission Date: 20141002
  Serious: Yes (Death, Other)
  Sender: FDA-Public Use
  Company Number: FR-ROCHE-1360164

PATIENT
  Sex: Female

DRUGS (3)
  1. PERJETA [Suspect]
     Indication: BREAST CANCER METASTATIC
     Route: 042
  2. HERCEPTIN [Suspect]
     Indication: BREAST CANCER METASTATIC
     Route: 042
  3. TAXOTERE [Suspect]
     Indication: BREAST CANCER METASTATIC
     Route: 042

REACTIONS (3)
  - Anaemia [Fatal]
  - Leukopenia [Fatal]
  - Mucosal inflammation [Unknown]
